FAERS Safety Report 8873887 (Version 2)
Quarter: 2012Q4

REPORT INFORMATION
  Report Type: Report from Study
  Country: AR (occurrence: AR)
  Receive Date: 20121023
  Receipt Date: 20121102
  Transmission Date: 20130627
  Serious: Yes (Hospitalization)
  Sender: FDA-Public Use
  Company Number: AR-ROCHE-1145335

PATIENT
  Age: 47 Year
  Sex: Female
  Weight: 67.5 kg

DRUGS (9)
  1. TOCILIZUMAB [Suspect]
     Indication: RHEUMATOID ARTHRITIS
     Dosage: last dose talen 10/Apr/2012
     Route: 058
     Dates: start: 20111108
  2. TOCILIZUMAB [Suspect]
     Indication: RHEUMATOID ARTHRITIS
     Dosage: last dose 162 mg, last dose taken on 09/Oct/2012
     Route: 065
     Dates: start: 20120424
  3. METHOTREXATE [Concomitant]
     Indication: RHEUMATOID ARTHRITIS
     Route: 048
     Dates: start: 2004
  4. PREDNISONE [Concomitant]
     Indication: RHEUMATOID ARTHRITIS
     Route: 048
     Dates: start: 2004
  5. FOLIC ACID [Concomitant]
     Indication: RHEUMATOID ARTHRITIS
     Route: 048
     Dates: start: 2004
  6. DICLOFENAC [Concomitant]
     Indication: RHEUMATOID ARTHRITIS
     Route: 048
     Dates: start: 2004
  7. PANTOPRAZOL [Concomitant]
     Route: 048
     Dates: start: 2004, end: 20121030
  8. LOSARTAN [Concomitant]
     Route: 048
     Dates: start: 20120814
  9. AMLODIPINE [Concomitant]
     Route: 048
     Dates: start: 20120619

REACTIONS (1)
  - Abscess neck [Not Recovered/Not Resolved]
